FAERS Safety Report 6623939-5 (Version None)
Quarter: 2010Q1

REPORT INFORMATION
  Report Type: 
  Country: None (occurrence: None)
  Receive Date: 20100310
  Receipt Date: 20100301
  Transmission Date: 20100710
  Serious: Yes (Death, Life-Threatening)
  Sender: FDA-Public Use
  Company Number: JP-BAYER-200914907BYL

PATIENT
  Age: 79 Year
  Sex: Male
  Weight: 45 kg

DRUGS (5)
  1. NEXAVAR [Suspect]
     Indication: HEPATIC NEOPLASM MALIGNANT
     Dosage: TOTAL DAILY DOSE: 800 MG  UNIT DOSE: 200 MG
     Route: 048
     Dates: start: 20091118, end: 20091130
  2. MYSLEE [Concomitant]
     Indication: INSOMNIA
     Route: 048
     Dates: start: 20091125, end: 20091130
  3. IA-CALL [Concomitant]
     Route: 013
     Dates: start: 20091006
  4. IOPAMIDOL-300 [Concomitant]
     Indication: COMPUTERISED TOMOGRAM
     Route: 042
     Dates: start: 20091113, end: 20091113
  5. SEISHOKU [Concomitant]
     Indication: COMPUTERISED TOMOGRAM
     Route: 042
     Dates: start: 20091113, end: 20091113

REACTIONS (2)
  - HEPATIC ENCEPHALOPATHY [None]
  - PNEUMONIA [None]
